FAERS Safety Report 4932130-X (Version None)
Quarter: 2006Q1

REPORT INFORMATION
  Report Type: 
  Country: None (occurrence: None)
  Receive Date: 20060303
  Receipt Date: 20060227
  Transmission Date: 20060701
  Serious: Yes (Death)
  Sender: FDA-Public Use
  Company Number: US-SANOFI-SYNTHELABO-A03200601085

PATIENT
  Age: 81 Year
  Sex: Female

DRUGS (2)
  1. PLAVIX [Suspect]
     Indication: DRUG USE FOR UNKNOWN INDICATION
     Route: 048
  2. ZOCOR [Concomitant]
     Dosage: UNK
     Route: 048

REACTIONS (2)
  - DEATH [None]
  - HOSPITALISATION [None]
